FAERS Safety Report 6543864-8 (Version None)
Quarter: 2010Q1

REPORT INFORMATION
  Report Type: 
  Country: None (occurrence: None)
  Receive Date: 20100119
  Receipt Date: 20100119
  Transmission Date: 20100710
  Serious: Yes (Hospitalization)
  Sender: FDA-Public Use
  Company Number: None

PATIENT
  Age: 75 Year
  Sex: Male
  Weight: 98.3 kg

DRUGS (1)
  1. NAPROXEN [Suspect]
     Indication: PAIN
     Dates: start: 20090812, end: 20100113

REACTIONS (3)
  - ANAEMIA [None]
  - ANGINA PECTORIS [None]
  - HAEMORRHAGE [None]
